FAERS Safety Report 18369477 (Version 1)
Quarter: 2020Q4

REPORT INFORMATION
  Report Type: Report from Study
  Country: CA (occurrence: CA)
  Receive Date: 20201012
  Receipt Date: 20201012
  Transmission Date: 20210114
  Serious: Yes (Hospitalization)
  Sender: FDA-Public Use
  Company Number: CA-ROCHE-2689599

PATIENT

DRUGS (1)
  1. RITUXIMAB. [Suspect]
     Active Substance: RITUXIMAB
     Indication: B-CELL LYMPHOMA
     Dosage: RITUXIMAB 2*100MG/10ML CA VL, RITUXIMAB 1*500MG/50ML CA VL, RITUXHA 1*1400MG/11.7ML CA VL
     Route: 041

REACTIONS (1)
  - Pelvic pain [Unknown]

NARRATIVE: CASE EVENT DATE: 20151118
